FAERS Safety Report 5765111-7 (Version None)
Quarter: 2008Q2

REPORT INFORMATION
  Report Type: 
  Country: None (occurrence: None)
  Receive Date: 20080611
  Receipt Date: 20080603
  Transmission Date: 20081010
  Serious: Yes (Disabling, Other)
  Sender: FDA-Public Use
  Company Number: CH-JNJFOC-20080504994

PATIENT
  Age: 24 Year
  Sex: Female

DRUGS (4)
  1. HALDOL [Suspect]
  2. HALDOL [Suspect]
     Indication: ANXIETY
  3. LAMICTAL [Suspect]
     Indication: PANIC DISORDER
     Route: 048
  4. SEROQUEL [Concomitant]
     Indication: PANIC DISORDER
     Route: 048

REACTIONS (2)
  - RASH [None]
  - SKIN EXFOLIATION [None]
